FAERS Safety Report 4579467-4 (Version None)
Quarter: 2005Q1

REPORT INFORMATION
  Report Type: 
  Country: None (occurrence: None)
  Receive Date: 20050209
  Receipt Date: 20050119
  Transmission Date: 20050727
  Serious: Yes (Life-Threatening, Hospitalization)
  Sender: FDA-Public Use
  Company Number: JP_050105585

PATIENT
  Age: 75 Year
  Sex: Male

DRUGS (7)
  1. ZYPREXA [Suspect]
     Indication: SCHIZOPHRENIA
     Dosage: 2.5 MG DAY
     Dates: start: 20041203, end: 20041217
  2. FLUVOXAMINE MALEATE [Concomitant]
  3. TRAZODONE HCL [Concomitant]
  4. AMOBAN (ZOPICLONE) [Concomitant]
  5. MAGNESIUM OXIDE [Concomitant]
  6. PURSENNID [Concomitant]
  7. AMICALIQ [Concomitant]

REACTIONS (2)
  - HEPATOCELLULAR DAMAGE [None]
  - THROMBOCYTOPENIA [None]
